FAERS Safety Report 16049817 (Version 1)
Quarter: 2019Q1

REPORT INFORMATION
  Report Type: Report from Study
  Country: None (occurrence: GB)
  Receive Date: 20190307
  Receipt Date: 20190307
  Transmission Date: 20190418
  Serious: Yes (Death, Hospitalization)
  Sender: FDA-Public Use
  Company Number: GB-ABBVIE-19K-167-2695476-00

PATIENT
  Age: 75 Year
  Sex: Female

DRUGS (1)
  1. HUMIRA [Suspect]
     Active Substance: ADALIMUMAB
     Indication: RHEUMATOID ARTHRITIS
     Route: 058
     Dates: start: 20150103, end: 20150915

REACTIONS (4)
  - Limb injury [Fatal]
  - Acute kidney injury [Fatal]
  - Osteomyelitis [Fatal]
  - Infected skin ulcer [Fatal]

NARRATIVE: CASE EVENT DATE: 20181126
